FAERS Safety Report 8771212 (Version 2)
Quarter: 2012Q4

REPORT INFORMATION
  Report Type: Report from Study
  Country: NL (occurrence: NL)
  Receive Date: 20120906
  Receipt Date: 20121031
  Transmission Date: 20130627
  Serious: Yes (Hospitalization)
  Sender: FDA-Public Use
  Company Number: NL-ROCHE-1108483

PATIENT
  Age: 69 Year

DRUGS (3)
  1. CAPECITABINE [Suspect]
     Indication: GASTRIC CANCER
     Dosage: Date of last treatment: 19/Aug/2012, Dose 2x 1650 mg
     Route: 048
     Dates: start: 20120808, end: 20120819
  2. EPIRUBICIN [Suspect]
     Indication: GASTRIC CANCER
     Dosage: Date of last treatment: 08/Aug/2012
     Route: 042
     Dates: start: 20120808
  3. CISPLATIN [Suspect]
     Indication: GASTRIC CANCER
     Dosage: Date of last treatment: 08/Aug/2012
     Route: 042
     Dates: start: 20120808

REACTIONS (2)
  - Vomiting [Recovered/Resolved]
  - Fluid retention [Not Recovered/Not Resolved]
